FAERS Safety Report 10010636 (Version 2)
Quarter: 2014Q1

REPORT INFORMATION
  Report Type: Spontaneous
  Country: DE (occurrence: DE)
  Receive Date: 20140314
  Receipt Date: 20140318
  Transmission Date: 20141002
  Serious: Yes (Other)
  Sender: FDA-Public Use
  Company Number: DE-AMGEN-DEUSP2014017618

PATIENT
  Sex: 0

DRUGS (4)
  1. NEULASTA [Suspect]
     Indication: PRODUCT USED FOR UNKNOWN INDICATION
     Dosage: UNK UNK, AFTER CHEMO
     Route: 065
  2. TAXOTERE [Concomitant]
     Dosage: UNK
  3. ADRIAMYCIN                         /00330901/ [Concomitant]
     Dosage: UNK
  4. CYCLOPHOSPHAMIDE [Concomitant]
     Dosage: UNK

REACTIONS (5)
  - White blood cell count decreased [Unknown]
  - Bone pain [Unknown]
  - Arthralgia [Unknown]
  - Hot flush [Unknown]
  - Asthenia [Unknown]
